FAERS Safety Report 8164664-1 (Version None)
Quarter: 2012Q1

REPORT INFORMATION
  Report Type: 
  Country: None (occurrence: None)
  Receive Date: 20120227
  Receipt Date: 20120217
  Transmission Date: 20120608
  Serious: Yes (Hospitalization)
  Sender: FDA-Public Use
  Company Number: US-BIOGENIDEC-2012BI004271

PATIENT
  Age: 54 Year
  Sex: Female

DRUGS (2)
  1. AVONEX [Suspect]
     Indication: MULTIPLE SCLEROSIS
     Route: 030
     Dates: start: 20061201
  2. AVONEX [Suspect]
     Route: 030
     Dates: start: 20100715, end: 20111201

REACTIONS (3)
  - FATIGUE [None]
  - THIRST [None]
  - ADVERSE DRUG REACTION [None]
